FAERS Safety Report 8922390 (Version 1)
Quarter: 2012Q4

REPORT INFORMATION
  Report Type: 
  Country: US (occurrence: US)
  Receive Date: 20121123
  Receipt Date: 20121123
  Transmission Date: 20130627
  Serious: Yes (Other)
  Sender: FDA-Public Use
  Company Number: US-JNJFOC-20120517286

PATIENT
  Sex: Female

DRUGS (12)
  1. TOPAMAX [Suspect]
     Indication: EPILEPSY
     Route: 048
     Dates: start: 20070209, end: 20070506
  2. TOPAMAX [Suspect]
     Indication: CONVULSION
     Route: 048
     Dates: start: 20070209, end: 20070506
  3. ACETAMINOPHEN / HYDROCODONE [Suspect]
     Indication: PAIN MANAGEMENT
     Route: 065
  4. CYCLOBENZAPRINE [Suspect]
     Indication: ANALGESIC THERAPY
     Route: 048
  5. NITROFURANTOIN [Suspect]
     Indication: INFECTION
     Route: 065
  6. ACETAMINOPHEN OXYCODONE [Suspect]
     Indication: ANALGESIC THERAPY
     Route: 065
  7. IBUPROFEN [Suspect]
     Indication: ANALGESIC THERAPY
     Route: 048
  8. AZITHROMYCIN [Suspect]
     Indication: INFECTION
     Route: 048
  9. ALL OTHER THERAPEUTIC AGENTS [Suspect]
     Indication: PRODUCT USED FOR UNKNOWN INDICATION
     Route: 065
  10. CLINDAMYCIN [Suspect]
     Indication: PRODUCT USED FOR UNKNOWN INDICATION
     Route: 065
  11. MULTIVITAMINS [Concomitant]
     Indication: GENERAL PHYSICAL CONDITION
     Route: 048
     Dates: start: 2007, end: 2012
  12. FOLIC ACID [Concomitant]
     Indication: VITAMIN SUPPLEMENTATION
     Route: 048

REACTIONS (12)
  - Exposure during pregnancy [Recovered/Resolved]
  - Prolonged labour [Recovered/Resolved]
  - Prolonged pregnancy [Recovered/Resolved]
  - Emotional disorder [Unknown]
  - Pregnancy [None]
  - Maternal exposure during pregnancy [None]
  - Headache [None]
  - Convulsion [None]
  - Dizziness [None]
  - Amnesia [None]
  - Aphasia [None]
  - Caesarean section [None]
